FAERS Safety Report 25076526 (Version 1)
Quarter: 2025Q1

REPORT INFORMATION
  Report Type: Spontaneous
  Country: US (occurrence: US)
  Receive Date: 20250313
  Receipt Date: 20250313
  Transmission Date: 20250408
  Serious: No
  Sender: GE HEALTHCARE
  Company Number: US-GE HEALTHCARE-2025CSU002554

PATIENT
  Age: 58 Year
  Sex: Female

DRUGS (2)
  1. CERETEC [Suspect]
     Active Substance: COBALTOUS CHLORIDE\TECHNETIUM TC-99M EXAMETAZIME
     Indication: Diagnostic procedure
     Route: 065
     Dates: start: 20250226, end: 20250226
  2. TECHNETIUM TC-99M [Concomitant]
     Active Substance: TECHNETIUM TC-99M

REACTIONS (1)
  - Rash [Not Recovered/Not Resolved]

NARRATIVE: CASE EVENT DATE: 20250226
